FAERS Safety Report 7690871-8 (Version None)
Quarter: 2011Q3

REPORT INFORMATION
  Report Type: 
  Country: None (occurrence: None)
  Receive Date: 20110818
  Receipt Date: 20110808
  Transmission Date: 20111222
  Serious: Yes (Hospitalization)
  Sender: FDA-Public Use
  Company Number: PHHY2011LB72322

PATIENT
  Sex: Male

DRUGS (6)
  1. PHENYTOIN [Suspect]
     Indication: CONVULSION
     Dosage: UNK UKN, UNK
  2. CLONAZEPAM [Suspect]
     Indication: CONVULSION
     Dosage: UNK UKN, UNK
  3. PYRIDOXINE HCL [Suspect]
     Dosage: UNK UKN, UNK
  4. CARBAMAZEPINE [Suspect]
     Indication: CONVULSION
     Dosage: UNK UKN, UNK
  5. TOPIRAMATE [Suspect]
     Indication: CONVULSION
     Dosage: UNK UKN, UNK
  6. PHENOBARBITAL TAB [Suspect]
     Indication: CONVULSION
     Dosage: UNK UKN, UNK

REACTIONS (10)
  - LEFT VENTRICULAR HYPERTROPHY [None]
  - HYPOREFLEXIA [None]
  - LETHARGY [None]
  - LEFT VENTRICULAR DYSFUNCTION [None]
  - NONKETOTIC HYPERGLYCINAEMIA [None]
  - GRAND MAL CONVULSION [None]
  - DRUG INEFFECTIVE [None]
  - VISUAL TRACKING TEST ABNORMAL [None]
  - NEURODEVELOPMENTAL DISORDER [None]
  - AMMONIA INCREASED [None]
